FAERS Safety Report 13911846 (Version 1)
Quarter: 2017Q3

REPORT INFORMATION
  Report Type: Spontaneous
  Country: US (occurrence: US)
  Receive Date: 20170827
  Receipt Date: 20170827
  Transmission Date: 20171127
  Serious: Yes (Hospitalization, Other)
  Sender: FDA-Public Use
  Company Number: None

PATIENT
  Age: 45 Year
  Sex: Female
  Weight: 54 kg

DRUGS (3)
  1. TRAMADOL. [Concomitant]
     Active Substance: TRAMADOL
  2. CEFEPIME [Suspect]
     Active Substance: CEFEPIME HYDROCHLORIDE
     Indication: PSEUDOMONAS INFECTION
     Dosage: ?          QUANTITY:620 ML;OTHER FREQUENCY:CONTINUOUS;?
     Route: 042
     Dates: start: 20160922, end: 20161205
  3. VALIUM [Concomitant]
     Active Substance: DIAZEPAM

REACTIONS (21)
  - Arthralgia [None]
  - Muscular weakness [None]
  - Urticaria [None]
  - Panic attack [None]
  - Altered state of consciousness [None]
  - Burning sensation [None]
  - Cough [None]
  - Visual impairment [None]
  - Rash [None]
  - Confusional state [None]
  - Amnesia [None]
  - Weight increased [None]
  - Anxiety [None]
  - Dyspnoea [None]
  - Feeling abnormal [None]
  - Swelling [None]
  - Pruritus [None]
  - Dysgeusia [None]
  - Parosmia [None]
  - Pain [None]
  - Heart rate increased [None]

NARRATIVE: CASE EVENT DATE: 20160922
